FAERS Safety Report 15193187 (Version 1)
Quarter: 2018Q3

REPORT INFORMATION
  Report Type: Report from Study
  Country: None (occurrence: US)
  Receive Date: 20180725
  Receipt Date: 20180725
  Transmission Date: 20181010
  Serious: Yes (Other)
  Sender: FDA-Public Use
  Company Number: US-ABBVIE-17K-163-2038900-00

PATIENT
  Sex: Female

DRUGS (5)
  1. HUMIRA [Suspect]
     Active Substance: ADALIMUMAB
     Indication: RHEUMATOID ARTHRITIS
     Route: 058
     Dates: start: 201703, end: 201703
  2. HUMIRA [Suspect]
     Active Substance: ADALIMUMAB
     Route: 058
     Dates: start: 20170925, end: 2018
  3. HUMIRA [Suspect]
     Active Substance: ADALIMUMAB
     Route: 058
     Dates: start: 2018
  4. HUMIRA [Suspect]
     Active Substance: ADALIMUMAB
     Route: 058
     Dates: start: 2017, end: 20170911
  5. HUMIRA [Suspect]
     Active Substance: ADALIMUMAB
     Route: 058
     Dates: start: 20170626, end: 2017

REACTIONS (24)
  - Gait disturbance [Unknown]
  - Joint swelling [Not Recovered/Not Resolved]
  - Sunburn [Unknown]
  - Pain in extremity [Not Recovered/Not Resolved]
  - Peripheral swelling [Not Recovered/Not Resolved]
  - Tendon rupture [Unknown]
  - Migraine [Unknown]
  - Nodule [Unknown]
  - Anxiety [Unknown]
  - Rheumatoid arthritis [Unknown]
  - Skin discolouration [Unknown]
  - Hypersensitivity [Unknown]
  - Sinusitis [Unknown]
  - Arthralgia [Unknown]
  - Fatigue [Unknown]
  - Injection site bruising [Recovered/Resolved]
  - Joint swelling [Recovered/Resolved]
  - Night sweats [Not Recovered/Not Resolved]
  - Visual impairment [Unknown]
  - Joint stiffness [Not Recovered/Not Resolved]
  - Diarrhoea [Unknown]
  - Hot flush [Not Recovered/Not Resolved]
  - Therapeutic response shortened [Unknown]
  - Pain [Unknown]

NARRATIVE: CASE EVENT DATE: 2017
